FAERS Safety Report 24406790 (Version 1)
Quarter: 2024Q4

REPORT INFORMATION
  Report Type: Spontaneous
  Country: US (occurrence: US)
  Receive Date: 20241007
  Receipt Date: 20241007
  Transmission Date: 20250114
  Serious: No
  Sender: KYOWA
  Company Number: US-KYOWAKIRIN-2024KK022575

PATIENT

DRUGS (9)
  1. CRYSVITA [Suspect]
     Active Substance: BUROSUMAB-TWZA
     Indication: Hereditary hypophosphataemic rickets
     Dosage: 70 MG, 1X/4 WEEKS (30 MG ALTERNATING WITH 40 MG)
     Route: 058
     Dates: start: 20231020
  2. CRYSVITA [Suspect]
     Active Substance: BUROSUMAB-TWZA
     Dosage: 30 MG ALTERNATING WITH 40 MG, 1X/2 WEEKS
     Route: 058
  3. CRYSVITA [Suspect]
     Active Substance: BUROSUMAB-TWZA
     Dosage: 30 MG ALTERNATING WITH 40 MG, 1X/2 WEEKS
     Route: 058
     Dates: start: 20240830
  4. CRYSVITA [Suspect]
     Active Substance: BUROSUMAB-TWZA
     Dosage: 30 MG ALTERNATING WITH 40 MG, 1X/2 WEEKS
     Route: 058
     Dates: start: 20240926
  5. CRYSVITA [Suspect]
     Active Substance: BUROSUMAB-TWZA
     Indication: Hereditary hypophosphataemic rickets
     Dosage: 70 MG, 1X/4 WEEKS (30 MG ALTERNATING WITH 40 MG)
     Route: 058
     Dates: start: 20231020
  6. CRYSVITA [Suspect]
     Active Substance: BUROSUMAB-TWZA
     Dosage: 30 MG ALTERNATING WITH 40 MG, 1X/2 WEEKS
     Route: 058
  7. CRYSVITA [Suspect]
     Active Substance: BUROSUMAB-TWZA
     Dosage: 30 MG ALTERNATING WITH 40 MG, 1X/2 WEEKS
     Route: 058
     Dates: start: 20240830
  8. CRYSVITA [Suspect]
     Active Substance: BUROSUMAB-TWZA
     Dosage: 30 MG ALTERNATING WITH 40 MG, 1X/2 WEEKS
     Route: 058
     Dates: start: 20240926
  9. XYZAL [Concomitant]
     Active Substance: LEVOCETIRIZINE DIHYDROCHLORIDE
     Indication: Product used for unknown indication
     Dosage: UNK
     Route: 065

REACTIONS (1)
  - Product prescribing error [Unknown]
